FAERS Safety Report 25185756 (Version 1)
Quarter: 2025Q2

REPORT INFORMATION
  Report Type: Spontaneous
  Country: US (occurrence: US)
  Receive Date: 20250410
  Receipt Date: 20250410
  Transmission Date: 20250717
  Serious: No
  Sender: BRISTOL MYERS SQUIBB
  Company Number: US-BRISTOL-MYERS SQUIBB COMPANY-2025-053843

PATIENT
  Age: 27 Year
  Sex: Female

DRUGS (1)
  1. COBENFY [Suspect]
     Active Substance: TROSPIUM CHLORIDE\XANOMELINE
     Indication: Schizophrenia
     Dosage: DOSE: 50MG/20MG, 100MG/20MG, FREQ: BID
     Route: 048

REACTIONS (3)
  - Vomiting [Recovered/Resolved]
  - Dyspepsia [Unknown]
  - Nausea [Unknown]
